FAERS Safety Report 25645320 (Version 7)
Quarter: 2025Q4

REPORT INFORMATION
  Report Type: Report from Study
  Country: CO (occurrence: CO)
  Receive Date: 20250805
  Receipt Date: 20251230
  Transmission Date: 20260118
  Serious: Yes (Other)
  Sender: TAKEDA
  Company Number: CO-TAKEDA-2025TUS015051

PATIENT
  Age: 67 Year
  Sex: Female
  Weight: 80 kg

DRUGS (2)
  1. VEDOLIZUMAB [Suspect]
     Active Substance: VEDOLIZUMAB
     Indication: Crohn^s disease
     Dosage: 300 MILLIGRAM
  2. ESOMEPRAZOLE [Concomitant]
     Active Substance: ESOMEPRAZOLE
     Dosage: 40 MILLIGRAM, QD

REACTIONS (29)
  - Cataract [Unknown]
  - Anxiety [Unknown]
  - Depressed mood [Unknown]
  - Drug ineffective [Unknown]
  - Product distribution issue [Unknown]
  - Lip dry [Unknown]
  - Pain [Unknown]
  - Influenza like illness [Unknown]
  - Tongue discomfort [Unknown]
  - Neuralgia [Unknown]
  - COVID-19 [Unknown]
  - Faeces soft [Unknown]
  - Discouragement [Unknown]
  - Decreased appetite [Unknown]
  - Headache [Unknown]
  - Oropharyngeal pain [Unknown]
  - Back pain [Unknown]
  - Nausea [Unknown]
  - Fatigue [Unknown]
  - Animal bite [Unknown]
  - Scratch [Unknown]
  - Product availability issue [Unknown]
  - Asthenia [Unknown]
  - Malaise [Unknown]
  - Hyperhidrosis [Unknown]
  - Herpes zoster [Unknown]
  - Hypertension [Unknown]
  - Arthralgia [Unknown]
  - Cough [Unknown]

NARRATIVE: CASE EVENT DATE: 20250202
